FAERS Safety Report 5852101-9 (Version None)
Quarter: 2008Q3

REPORT INFORMATION
  Report Type: 
  Country: None (occurrence: None)
  Receive Date: 20080819
  Receipt Date: 20080819
  Transmission Date: 20090109
  Serious: Yes (Hospitalization)
  Sender: FDA-Public Use
  Company Number: None

PATIENT
  Age: 69 Year
  Sex: Male
  Weight: 161 kg

DRUGS (7)
  1. WARFARIN SODIUM [Suspect]
     Indication: ATRIAL FIBRILLATION
     Dosage: 3MG DAILY PO
     Route: 048
     Dates: start: 20080215, end: 20080301
  2. WARFARIN SODIUM [Suspect]
     Indication: HIP ARTHROPLASTY
     Dosage: 3MG DAILY PO
     Route: 048
     Dates: start: 20080215, end: 20080301
  3. TOPROL-XL [Concomitant]
  4. PROSCAR [Concomitant]
  5. DOXAZOSIN MESYLATE [Concomitant]
  6. LASIX [Concomitant]
  7. PERCOCET [Concomitant]

REACTIONS (4)
  - HAEMATOMA [None]
  - INTERNATIONAL NORMALISED RATIO INCREASED [None]
  - PAIN [None]
  - SWELLING [None]
